FAERS Safety Report 7385776-6 (Version None)
Quarter: 2011Q1

REPORT INFORMATION
  Report Type: 
  Country: None (occurrence: None)
  Receive Date: 20110301
  Receipt Date: 20100706
  Transmission Date: 20110831
  Serious: Yes (Other)
  Sender: FDA-Public Use
  Company Number: 2211100-US-JNJFOC-20100403455

PATIENT
  Age: 50 Year
  Sex: Male

DRUGS (1)
  1. IBUPROFEN [Suspect]
     Indication: ILL-DEFINED DISORDER

REACTIONS (1)
  - PEPTIC ULCER [None]
